FAERS Safety Report 5567897-3 (Version None)
Quarter: 2007Q4

REPORT INFORMATION
  Report Type: 
  Country: None (occurrence: None)
  Receive Date: 20071218
  Receipt Date: 20071218
  Transmission Date: 20080405
  Serious: No
  Sender: FDA-Public Use
  Company Number: None

PATIENT
  Age: 31 Year
  Sex: Female
  Weight: 72.5755 kg

DRUGS (11)
  1. BENZTROPINE MESYLATE [Suspect]
     Dosage: 2MG BID PO
     Route: 048
  2. ACTOS [Concomitant]
  3. LORAZEPAM [Concomitant]
  4. LIPITOR [Concomitant]
  5. GLIPIZIDE [Concomitant]
  6. RANITIDINE HCL [Concomitant]
  7. RISPERDAL [Concomitant]
  8. LAMICTAL [Concomitant]
  9. COLACE [Concomitant]
  10. ASPIRIN [Concomitant]
  11. FERREX [Concomitant]

REACTIONS (2)
  - PRURITUS [None]
  - RASH [None]
